FAERS Safety Report 11806780 (Version 1)
Quarter: 2015Q4

REPORT INFORMATION
  Report Type: Other
  Country: GB (occurrence: GB)
  Receive Date: 20151207
  Receipt Date: 20151207
  Transmission Date: 20160305
  Serious: Yes (Other)
  Sender: FDA-Public Use
  Company Number: GB-ASTELLAS-2015US034992

PATIENT
  Age: 50 Year
  Sex: Male

DRUGS (5)
  1. ADVAGRAF [Suspect]
     Active Substance: TACROLIMUS
     Indication: IMMUNOSUPPRESSION
     Route: 048
  2. ADVAGRAF [Suspect]
     Active Substance: TACROLIMUS
     Route: 048
  3. PREDNISOLONE. [Suspect]
     Active Substance: PREDNISOLONE
     Indication: IMMUNOSUPPRESSION
     Route: 065
     Dates: start: 20141106
  4. PREDNISOLONE. [Suspect]
     Active Substance: PREDNISOLONE
     Route: 065
  5. CELLCEPT [Suspect]
     Active Substance: MYCOPHENOLATE MOFETIL\MYCOPHENOLATE MOFETIL HYDROCHLORIDE
     Indication: IMMUNOSUPPRESSION
     Route: 048

REACTIONS (1)
  - White blood cell count decreased [Unknown]
